FAERS Safety Report 7817507-7 (Version None)
Quarter: 2011Q4

REPORT INFORMATION
  Report Type: 
  Country: None (occurrence: None)
  Receive Date: 20111012
  Receipt Date: 20110930
  Transmission Date: 20120403
  Serious: Yes (Congenital Anomaly, Other)
  Sender: FDA-Public Use
  Company Number: AUR-APL-2010-00731

PATIENT
  Sex: Male

DRUGS (8)
  1. ZIDOVUDINE [Suspect]
     Indication: HIV INFECTION
     Dosage: UNKNOWN (UNKNOWN), TRANSPLACENTAL
     Route: 064
     Dates: start: 20070521
  2. NELFINAVIR MESILATE (NELFINAVIR MESILATE) [Suspect]
     Indication: HIV INFECTION
     Dosage: UNKNOWN (UNKNOWN), TRANSPLACENTAL
     Route: 064
     Dates: start: 20070512, end: 20070612
  3. TENOFOVIR DISOPROXIL FUMARATE [Suspect]
     Indication: HIV INFECTION
     Dosage: UNKNOWN (UNKNOWN), TRANSPLACENTAL
     Route: 064
     Dates: start: 20070403, end: 20070521
  4. RITONAVIR [Suspect]
     Indication: HIV INFECTION
     Dosage: UNKNOWN (UNKNOWN), TRANSPLACENTAL
     Route: 064
     Dates: start: 20070310
  5. LAMIVUDINE (LAMIVUDINE) (LAMIVUDINE) [Suspect]
     Indication: HIV INFECTION
     Dosage: UNKNOWN (UNKNOWN), TRANSPLACENTAL
     Route: 064
     Dates: start: 20070512
  6. EFAVIRENZ (EFAVIRENZ) (EFAVIRENZ) [Suspect]
     Indication: HIV INFECTION
     Dosage: UNKNOWN (UNKNOWN), TRANSPLACENTAL
     Route: 064
     Dates: start: 20070403, end: 20070510
  7. EMTRICITABINE (EMTRICITABINE) (EMTRICITABINE) [Suspect]
     Indication: HIV INFECTION
     Dosage: UNKNOWN (UNKNOWN), TRANSPLACENTAL
     Route: 064
     Dates: start: 20070403, end: 20070521
  8. LOPINAVIR (LOPINAVIR) [Suspect]
     Indication: HIV INFECTION
     Dosage: UNKNOWN (UNKNOWN), TRANSPLACENTAL
     Route: 064
     Dates: start: 20070510

REACTIONS (2)
  - MATERNAL DRUGS AFFECTING FOETUS [None]
  - HYDROCELE [None]
